FAERS Safety Report 4718904-9 (Version None)
Quarter: 2005Q3

REPORT INFORMATION
  Report Type: 
  Country: None (occurrence: None)
  Receive Date: 20050719
  Receipt Date: 20050701
  Transmission Date: 20060218
  Serious: Yes (Death)
  Sender: FDA-Public Use
  Company Number: 215772

PATIENT
  Age: 75 Year
  Sex: Male

DRUGS (5)
  1. AVASTIN [Suspect]
     Indication: COLORECTAL CANCER METASTATIC
     Dosage: 380 MG, Q2W, INTRAVENOUS
     Route: 042
     Dates: start: 20050614
  2. 5-FU (FLOUROURACIL) [Concomitant]
  3. NEXIUM [Concomitant]
  4. ISOTEN (BISOPROLOL FUMARATE) [Concomitant]
  5. GLUCONORM (REPAGLINIDE) [Concomitant]

REACTIONS (2)
  - INTESTINAL PERFORATION [None]
  - PYREXIA [None]
